FAERS Safety Report 16191061 (Version 4)
Quarter: 2020Q2

REPORT INFORMATION
  Report Type: Spontaneous
  Country: US (occurrence: US)
  Receive Date: 20190412
  Receipt Date: 20200511
  Transmission Date: 20200713
  Serious: Yes (Hospitalization)
  Sender: FDA-Public Use
  Company Number: US-ACTELION-A-NJ2019-189154

PATIENT
  Age: 47 Year
  Sex: Female

DRUGS (3)
  1. OPSUMIT [Suspect]
     Active Substance: MACITENTAN
     Indication: PULMONARY ARTERIAL HYPERTENSION
     Dosage: 10 MG, QD
     Route: 048
     Dates: start: 20180917
  2. NIFEDIPINE. [Concomitant]
     Active Substance: NIFEDIPINE
  3. ADCIRCA [Concomitant]
     Active Substance: TADALAFIL

REACTIONS (6)
  - Enteritis [Unknown]
  - Hypotension [Recovered/Resolved]
  - Rehabilitation therapy [Unknown]
  - Viral infection [Unknown]
  - Dizziness [Recovered/Resolved]
  - Bronchiolitis [Unknown]

NARRATIVE: CASE EVENT DATE: 20190323
